FAERS Safety Report 18321889 (Version 1)
Quarter: 2020Q3

REPORT INFORMATION
  Report Type: Spontaneous
  Country: GB (occurrence: GB)
  Receive Date: 20200929
  Receipt Date: 20200929
  Transmission Date: 20201103
  Serious: Yes (Other)
  Sender: FDA-Public Use
  Company Number: GB-BIOVITRUM-2017GB0839

PATIENT
  Age: 40 Year
  Sex: Female

DRUGS (10)
  1. ORAL FERROUS FUMERATE [Concomitant]
     Indication: ANAEMIA
     Dosage: 50MG AM, 75MG PM
     Route: 048
     Dates: start: 20170809, end: 20170918
  2. PREGNACARE [Concomitant]
     Active Substance: MINERALS\VITAMINS
     Indication: PREGNANCY
     Dates: start: 20170911
  3. KINERET [Suspect]
     Active Substance: ANAKINRA
     Indication: PALMOPLANTAR PUSTULOSIS
     Dates: start: 20170710, end: 20170904
  4. LABETALOL [Concomitant]
     Active Substance: LABETALOL\LABETALOL HYDROCHLORIDE
     Indication: CARDIOVASCULAR DISORDER
     Dates: start: 20170806, end: 20171117
  5. CICLOSPORIN [Concomitant]
     Active Substance: CYCLOSPORINE
     Indication: PALMOPLANTAR PUSTULOSIS
     Dosage: 50 MG AM, 75 MG PM
     Route: 048
     Dates: start: 20171221, end: 201804
  6. LABETALOL [Concomitant]
     Active Substance: LABETALOL\LABETALOL HYDROCHLORIDE
     Route: 048
     Dates: start: 20170901
  7. FERROGLOBIN [Concomitant]
     Indication: BLOOD DISORDER
     Dates: start: 20170712, end: 20170809
  8. ASPRIN [Concomitant]
     Active Substance: ASPIRIN
     Indication: CARDIOVASCULAR DISORDER
     Dates: start: 20170905
  9. FERROGLOBIN [Concomitant]
     Indication: ANAEMIA
  10. LABETALOL [Concomitant]
     Active Substance: LABETALOL\LABETALOL HYDROCHLORIDE
     Indication: HYPERTENSION
     Route: 048
     Dates: start: 20171122

REACTIONS (3)
  - Lower respiratory tract infection [Recovered/Resolved]
  - Maternal exposure during pregnancy [Recovered/Resolved]
  - Gestational diabetes [Unknown]

NARRATIVE: CASE EVENT DATE: 20171121
